FAERS Safety Report 15402562 (Version 1)
Quarter: 2018Q3

REPORT INFORMATION
  Report Type: Spontaneous
  Country: US (occurrence: US)
  Receive Date: 20180916
  Receipt Date: 20180916
  Transmission Date: 20181010
  Serious: Yes (Disabling, Other)
  Sender: FDA-Public Use
  Company Number: None

PATIENT
  Age: 50 Year
  Sex: Male
  Weight: 129.6 kg

DRUGS (12)
  1. CHLORTHALIDONE. [Concomitant]
     Active Substance: CHLORTHALIDONE
  2. METFORMIN HCL [Concomitant]
     Active Substance: METFORMIN HYDROCHLORIDE
  3. GABAPENTIN. [Concomitant]
     Active Substance: GABAPENTIN
  4. ATORVASTATIN CALCIUM. [Concomitant]
     Active Substance: ATORVASTATIN CALCIUM
  5. ALBUTEROL. [Concomitant]
     Active Substance: ALBUTEROL
  6. GLIPIZIDE. [Concomitant]
     Active Substance: GLIPIZIDE
  7. ASPIRIN 81MG EC [Concomitant]
  8. GOLYTELY [Suspect]
     Active Substance: POLYETHYLENE GLYCOL 3350\POTASSIUM CHLORIDE\SODIUM BICARBONATE\SODIUM CHLORIDE\SODIUM SULFATE ANHYDROUS
     Indication: COLONOSCOPY
     Dosage: ?          QUANTITY:1 4 LITERS BY MOUTH;OTHER FREQUENCY:EVERY 10 MINS 8 OZ;?
     Route: 048
     Dates: start: 20180728, end: 20180730
  9. FLUTICASONE PROP [Concomitant]
     Active Substance: FLUTICASONE PROPIONATE
  10. VICTOZA [Concomitant]
     Active Substance: LIRAGLUTIDE
  11. LOSARTAN POTASSIUM. [Concomitant]
     Active Substance: LOSARTAN POTASSIUM
  12. BACLOFEN. [Concomitant]
     Active Substance: BACLOFEN

REACTIONS (7)
  - Weight increased [None]
  - Plantar fasciitis [None]
  - Arthralgia [None]
  - Fluid retention [None]
  - Pain in extremity [None]
  - Walking aid user [None]
  - Pain [None]

NARRATIVE: CASE EVENT DATE: 20180730
